FAERS Safety Report 9233442 (Version 7)
Quarter: 2014Q1

REPORT INFORMATION
  Report Type: Report from Study
  Country: FR (occurrence: FR)
  Receive Date: 20130416
  Receipt Date: 20140121
  Transmission Date: 20141002
  Serious: Yes (Death, Other)
  Sender: FDA-Public Use
  Company Number: FR-CELGENEUS-056-21880-13040722

PATIENT
  Age: 76 Year
  Sex: Male
  Weight: 82 kg

DRUGS (9)
  1. REVLIMID [Suspect]
     Indication: PLASMA CELL MYELOMA
     Dosage: 25 MILLIGRAM
     Route: 048
     Dates: start: 20111118, end: 20111202
  2. REVLIMID [Suspect]
     Dosage: /21 DAYS
     Route: 048
     Dates: start: 20120818, end: 20120830
  3. REVLIMID [Suspect]
     Dosage: 15 MILLIGRAM
     Route: 048
     Dates: start: 20120628, end: 20120713
  4. REVLIMID [Suspect]
     Dosage: 15 MILLIGRAM
     Route: 048
     Dates: start: 2012, end: 201210
  5. THALIDOMIDE [Suspect]
     Indication: PLASMA CELL MYELOMA
     Route: 048
     Dates: start: 201008, end: 201109
  6. DEXAMETHASONE [Suspect]
     Indication: PLASMA CELL MYELOMA
     Route: 048
     Dates: start: 20111111, end: 20111215
  7. DEXAMETHASONE [Suspect]
     Route: 048
     Dates: start: 20120606, end: 20120830
  8. DEXAMETHASONE [Suspect]
     Route: 065
     Dates: start: 201211
  9. ASPIRINE [Concomitant]
     Indication: THROMBOSIS PROPHYLAXIS
     Route: 065

REACTIONS (2)
  - Bowen^s disease [Recovered/Resolved]
  - Plasma cell myeloma [Fatal]
